FAERS Safety Report 9784544 (Version 1)
Quarter: 2013Q4

REPORT INFORMATION
  Report Type: Report from Study
  Country: US (occurrence: US)
  Receive Date: 20131226
  Receipt Date: 20131226
  Transmission Date: 20140711
  Serious: Yes (Other)
  Sender: FDA-Public Use
  Company Number: US-ABBVIE-13P-163-1180869-00

PATIENT
  Age: 66 Year
  Sex: Male

DRUGS (15)
  1. HUMIRA [Suspect]
     Indication: RHEUMATOID ARTHRITIS
  2. FOLIC ACID [Concomitant]
     Indication: PRODUCT USED FOR UNKNOWN INDICATION
  3. MELOXICAM [Concomitant]
     Indication: PRODUCT USED FOR UNKNOWN INDICATION
  4. PROTONIX [Concomitant]
     Indication: PRODUCT USED FOR UNKNOWN INDICATION
  5. PLAVIX [Concomitant]
     Indication: THROMBOSIS PROPHYLAXIS
  6. PREDNISONE [Concomitant]
     Indication: PRODUCT USED FOR UNKNOWN INDICATION
     Dosage: 4MG QD PRN
  7. NUCYNTA [Concomitant]
     Indication: BACK PAIN
     Dosage: 50 MG BID PRN
  8. XANAX [Concomitant]
     Indication: ANXIETY
  9. METOPROLOL [Concomitant]
     Indication: BLOOD PRESSURE
  10. ASA [Concomitant]
     Indication: PRODUCT USED FOR UNKNOWN INDICATION
  11. NITROSTAT [Concomitant]
     Indication: ANGINA PECTORIS
  12. RHEUMATREX [Concomitant]
     Indication: RHEUMATOID ARTHRITIS
  13. FISH OIL [Concomitant]
     Indication: SUPPLEMENTATION THERAPY
  14. VITAMIN D [Concomitant]
     Indication: VITAMIN SUPPLEMENTATION
  15. VITAMIN C [Concomitant]
     Indication: VITAMIN SUPPLEMENTATION

REACTIONS (3)
  - Arterial stenosis [Not Recovered/Not Resolved]
  - Bronchitis [Unknown]
  - Headache [Unknown]
